FAERS Safety Report 16845383 (Version 1)
Quarter: 2019Q4

REPORT INFORMATION
  Report Type: Spontaneous
  Country: US (occurrence: US)
  Receive Date: 20190924
  Receipt Date: 20190924
  Transmission Date: 20200122
  Serious: Yes (Other)
  Sender: FDA-Public Use
  Company Number: None

PATIENT
  Age: 31 Year
  Sex: Male
  Weight: 105.3 kg

DRUGS (7)
  1. ROSUVASTATIN. [Concomitant]
     Active Substance: ROSUVASTATIN
     Dates: start: 20190713
  2. SAXENDA [Suspect]
     Active Substance: LIRAGLUTIDE
     Indication: OBESITY
     Route: 058
     Dates: start: 20190719, end: 20190913
  3. VELTASSA [Concomitant]
     Active Substance: PATIROMER
     Dates: start: 20190713
  4. ALLOPURINOL. [Concomitant]
     Active Substance: ALLOPURINOL
     Dates: start: 20170927
  5. OLMESARTAN [Concomitant]
     Active Substance: OLMESARTAN
     Dates: start: 20190417
  6. CALCITRIOL. [Concomitant]
     Active Substance: CALCITRIOL
     Dates: start: 20180617
  7. SODIUM BICARBONATE. [Concomitant]
     Active Substance: SODIUM BICARBONATE
     Dates: start: 20170927

REACTIONS (8)
  - Lipase increased [None]
  - Weight decreased [None]
  - Abdominal discomfort [None]
  - Nausea [None]
  - Pancreatitis [None]
  - Vomiting [None]
  - Diarrhoea [None]
  - Gastroenteritis [None]

NARRATIVE: CASE EVENT DATE: 20190912
